FAERS Safety Report 5817699-5 (Version None)
Quarter: 2008Q3

REPORT INFORMATION
  Report Type: 
  Country: None (occurrence: None)
  Receive Date: 20080722
  Receipt Date: 20080711
  Transmission Date: 20090109
  Serious: Yes (Other)
  Sender: FDA-Public Use
  Company Number: PHHY2008NL13850

PATIENT
  Sex: Female
  Weight: 60 kg

DRUGS (2)
  1. RITALIN [Suspect]
     Indication: ATTENTION DEFICIT/HYPERACTIVITY DISORDER
     Dosage: 3DD 10 MG
     Route: 048
     Dates: start: 20071114
  2. IBUPROFEN [Suspect]
     Indication: HEADACHE
     Dosage: 2DD 200 MG
     Dates: start: 20080602, end: 20080602

REACTIONS (13)
  - DRUG INTERACTION [None]
  - DRY MOUTH [None]
  - DYSPHAGIA [None]
  - HEADACHE [None]
  - HEART RATE INCREASED [None]
  - HYPERHIDROSIS [None]
  - HYPERVENTILATION [None]
  - MIGRAINE [None]
  - MUSCLE CONTRACTIONS INVOLUNTARY [None]
  - NAUSEA [None]
  - PARAESTHESIA [None]
  - TREMOR [None]
  - VOMITING [None]
